FAERS Safety Report 5651851-7 (Version None)
Quarter: 2008Q1

REPORT INFORMATION
  Report Type: 
  Country: None (occurrence: None)
  Receive Date: 20080305
  Receipt Date: 20080225
  Transmission Date: 20080703
  Serious: Yes (Other)
  Sender: FDA-Public Use
  Company Number: FR-PFIZER INC-2008017964

PATIENT
  Age: 69 Year
  Sex: Male
  Weight: 78 kg

DRUGS (4)
  1. TAHOR [Suspect]
  2. ASPEGIC 1000 [Concomitant]
  3. ATENOLOL [Concomitant]
  4. CHONDROSULF [Concomitant]

REACTIONS (1)
  - POLYNEUROPATHY [None]
